FAERS Safety Report 23689971 (Version 1)
Quarter: 2024Q2

REPORT INFORMATION
  Report Type: Spontaneous
  Country: US (occurrence: US)
  Receive Date: 20240401
  Receipt Date: 20240401
  Transmission Date: 20240716
  Serious: Yes (Other)
  Sender: FDA-Public Use
  Company Number: US-MACLEODS PHARMACEUTICALS US LTD-MAC2024046548

PATIENT

DRUGS (9)
  1. ENTACAPONE [Suspect]
     Active Substance: ENTACAPONE
     Indication: Gait disturbance
     Dosage: UNK, (9 MONTHS)
     Route: 065
  2. ENTACAPONE [Suspect]
     Active Substance: ENTACAPONE
     Indication: Parkinsonism
  3. ENTACAPONE [Suspect]
     Active Substance: ENTACAPONE
     Indication: Fall
  4. CARBIDOPA\LEVODOPA [Suspect]
     Active Substance: CARBIDOPA\LEVODOPA
     Indication: Gait disturbance
     Dosage: UNK, (9 MONTHS)
     Route: 065
  5. CARBIDOPA\LEVODOPA [Suspect]
     Active Substance: CARBIDOPA\LEVODOPA
     Indication: Parkinsonism
  6. CARBIDOPA\LEVODOPA [Suspect]
     Active Substance: CARBIDOPA\LEVODOPA
     Indication: Fall
  7. ROPINIROLE [Suspect]
     Active Substance: ROPINIROLE
     Indication: Fall
     Dosage: UNK
     Route: 065
  8. ROPINIROLE [Suspect]
     Active Substance: ROPINIROLE
     Indication: Gait disturbance
  9. ROPINIROLE [Suspect]
     Active Substance: ROPINIROLE
     Indication: Parkinsonism

REACTIONS (3)
  - Confusional state [Unknown]
  - Drug ineffective [Unknown]
  - Somnolence [Unknown]
